FAERS Safety Report 8233814-0 (Version None)
Quarter: 2012Q1

REPORT INFORMATION
  Report Type: 
  Country: None (occurrence: None)
  Receive Date: 20120326
  Receipt Date: 20120320
  Transmission Date: 20120608
  Serious: Yes (Death)
  Sender: FDA-Public Use
  Company Number: AU-ASTELLAS-2012JP002505

PATIENT
  Age: 50 Year
  Sex: Male

DRUGS (2)
  1. FLUDARABINE PHOSPHATE [Suspect]
     Route: 065
  2. TACROLIMUS [Suspect]
     Indication: BONE MARROW TRANSPLANT
     Route: 065

REACTIONS (3)
  - DEVICE RELATED SEPSIS [None]
  - GRAFT VERSUS HOST DISEASE [None]
  - THROMBOTIC MICROANGIOPATHY [None]
